FAERS Safety Report 9262813 (Version 2)
Quarter: 2013Q3

REPORT INFORMATION
  Report Type: Report from Study
  Country: US (occurrence: US)
  Receive Date: 20130430
  Receipt Date: 20130925
  Transmission Date: 20140515
  Serious: Yes (Other)
  Sender: FDA-Public Use
  Company Number: PHEH2013US009355

PATIENT
  Sex: Female

DRUGS (2)
  1. AFINITOR [Suspect]
     Dosage: 10 MG, QD
     Route: 048
  2. SUTENT [Concomitant]

REACTIONS (10)
  - Periorbital contusion [Recovering/Resolving]
  - Gout [Recovering/Resolving]
  - Pelvic fracture [Unknown]
  - Pelvic pain [Unknown]
  - Back pain [Unknown]
  - Abdominal distension [Unknown]
  - Flatulence [Unknown]
  - Urticaria [Recovering/Resolving]
  - Lip swelling [Recovering/Resolving]
  - Nausea [Unknown]
